FAERS Safety Report 6706394-6 (Version None)
Quarter: 2010Q2

REPORT INFORMATION
  Report Type: 
  Country: None (occurrence: None)
  Receive Date: 20100423
  Receipt Date: 20091216
  Transmission Date: 20101027
  Serious: No
  Sender: FDA-Public Use
  Company Number: ALL1-2009-04056

PATIENT
  Sex: Female

DRUGS (1)
  1. VYVANSE [Suspect]
     Indication: ATTENTION DEFICIT/HYPERACTIVITY DISORDER
     Dosage: 20 MG, 1X/DAY:QD, ORAL
     Route: 048
     Dates: start: 20091209

REACTIONS (5)
  - DECREASED APPETITE [None]
  - DYSSTASIA [None]
  - FEELING ABNORMAL [None]
  - INITIAL INSOMNIA [None]
  - SOMNOLENCE [None]
